FAERS Safety Report 14046914 (Version 1)
Quarter: 2017Q4

REPORT INFORMATION
  Report Type: Spontaneous
  Country: US (occurrence: US)
  Receive Date: 20171005
  Receipt Date: 20171005
  Transmission Date: 20180321
  Serious: No
  Sender: FDA-Public Use
  Company Number: US-PFIZER INC-2017371802

PATIENT
  Age: 16 Year
  Sex: Male
  Weight: 55 kg

DRUGS (7)
  1. GENOTROPIN [Suspect]
     Active Substance: SOMATROPIN
     Indication: BODY HEIGHT BELOW NORMAL
     Dosage: 2.4 MG, DAILY
     Route: 058
     Dates: start: 201608
  2. CONCERTA [Concomitant]
     Active Substance: METHYLPHENIDATE HYDROCHLORIDE
     Dosage: 54 MG, DAILY
     Route: 048
  3. ARIMIDEX [Concomitant]
     Active Substance: ANASTROZOLE
     Indication: PRECOCIOUS PUBERTY
     Dosage: 1 MG, DAILY
     Route: 048
  4. GENOTROPIN [Suspect]
     Active Substance: SOMATROPIN
     Dosage: 2.8 MG, DAILY
     Route: 058
     Dates: start: 2017
  5. INSULIN [Concomitant]
     Active Substance: INSULIN NOS
     Dosage: UNK (30G 8 MM MISC)
  6. GENOTROPIN [Suspect]
     Active Substance: SOMATROPIN
     Indication: GROWTH HORMONE DEFICIENCY
     Dosage: 2.2 MG, DAILY
     Route: 058
     Dates: start: 2013
  7. GENOTROPIN [Suspect]
     Active Substance: SOMATROPIN
     Dosage: 2.6 MG, DAILY
     Route: 058

REACTIONS (2)
  - Weight increased [Unknown]
  - Insulin-like growth factor increased [Unknown]

NARRATIVE: CASE EVENT DATE: 2016
